FAERS Safety Report 5090581-X (Version None)
Quarter: 2006Q3

REPORT INFORMATION
  Report Type: 
  Country: None (occurrence: None)
  Receive Date: 20060828
  Receipt Date: 20060609
  Transmission Date: 20061208
  Serious: No
  Sender: FDA-Public Use
  Company Number: US-GLAXOSMITHKLINE-A0608699A

PATIENT
  Age: 53 Year
  Sex: Female

DRUGS (5)
  1. WELLBUTRIN XL [Suspect]
     Indication: DEPRESSION
     Dosage: 300MG PER DAY
     Route: 048
     Dates: end: 20060606
  2. XANAX [Concomitant]
  3. TRAZODONE HCL [Concomitant]
  4. CYMBALTA [Concomitant]
  5. DEXEDRINE [Concomitant]

REACTIONS (4)
  - ABNORMAL DREAMS [None]
  - ANGER [None]
  - PARANOIA [None]
  - PERFORMANCE STATUS DECREASED [None]
